FAERS Safety Report 10671789 (Version 2)
Quarter: 2015Q1

REPORT INFORMATION
  Report Type: Spontaneous
  Country: US (occurrence: US)
  Receive Date: 20141223
  Receipt Date: 20150122
  Transmission Date: 20150720
  Serious: Yes (Hospitalization)
  Sender: FDA-Public Use
  Company Number: US-CUBIST PHARMACEUTICALS, INC.-2014CBST001692

PATIENT

DRUGS (77)
  1. CUBICIN [Suspect]
     Active Substance: DAPTOMYCIN
     Dosage: 520 MG, Q24H
     Route: 042
     Dates: start: 20130416, end: 20130426
  2. FLUCONAZOLE. [Concomitant]
     Active Substance: FLUCONAZOLE
     Indication: PRODUCT USED FOR UNKNOWN INDICATION
     Dosage: UNK UNK, UNK
     Route: 065
     Dates: start: 2012
  3. LEVOFLOXACIN. [Concomitant]
     Active Substance: LEVOFLOXACIN
     Indication: PRODUCT USED FOR UNKNOWN INDICATION
     Dosage: UNK UNK, UNK
     Route: 065
     Dates: start: 2012
  4. LEVOFLOXACIN. [Concomitant]
     Active Substance: LEVOFLOXACIN
     Dosage: UNK UNK, UNK
     Route: 065
     Dates: start: 2013
  5. LEVOFLOXACIN. [Concomitant]
     Active Substance: LEVOFLOXACIN
     Dosage: UNK UNK, UNK
     Route: 065
     Dates: start: 2014
  6. MEROPENEM. [Concomitant]
     Active Substance: MEROPENEM
     Dosage: UNK UNK, UNK
     Route: 065
     Dates: start: 2014
  7. MICAFUNGIN [Concomitant]
     Active Substance: MICAFUNGIN
     Dosage: UNK UNK, UNK
     Route: 065
     Dates: start: 2013
  8. CEFOXITIN [Concomitant]
     Active Substance: CEFOXITIN\CEFOXITIN SODIUM
     Indication: PRODUCT USED FOR UNKNOWN INDICATION
     Dosage: UNK UNK, UNK
     Route: 065
     Dates: start: 2012
  9. AZTREONAM. [Concomitant]
     Active Substance: AZTREONAM
     Indication: PRODUCT USED FOR UNKNOWN INDICATION
     Dosage: UNK UNK, UNK
     Route: 065
     Dates: start: 2013
  10. KEFLEX [Concomitant]
     Active Substance: CEPHALEXIN
     Indication: PRODUCT USED FOR UNKNOWN INDICATION
     Dosage: UNK UNK, UNK
     Route: 065
     Dates: start: 2013
  11. ACYCLOVIR                          /00587301/ [Concomitant]
     Active Substance: ACYCLOVIR
     Indication: PRODUCT USED FOR UNKNOWN INDICATION
     Dosage: UNK UNK, UNK
     Route: 065
     Dates: start: 2013
  12. CUBICIN [Suspect]
     Active Substance: DAPTOMYCIN
     Dosage: 330 MG, Q24H
     Route: 042
     Dates: start: 20130215, end: 20130217
  13. CUBICIN [Suspect]
     Active Substance: DAPTOMYCIN
     Dosage: 400 MG, Q24H (FREQUENT INTERMITTENT USE)
     Route: 042
     Dates: start: 20130915, end: 20130927
  14. CUBICIN [Suspect]
     Active Substance: DAPTOMYCIN
     Dosage: 260 MG, X1
     Route: 042
     Dates: start: 20131011
  15. CUBICIN [Suspect]
     Active Substance: DAPTOMYCIN
     Dosage: 400 MG, Q24H (SECOND DAPTO NON SUSCEPTIBLE VRE)
     Route: 042
     Dates: start: 20141214, end: 20141215
  16. LINEZOLID. [Concomitant]
     Active Substance: LINEZOLID
     Indication: PRODUCT USED FOR UNKNOWN INDICATION
     Dosage: UNK UNK, UNK
     Route: 065
     Dates: start: 2012
  17. LINEZOLID. [Concomitant]
     Active Substance: LINEZOLID
     Dosage: UNK UNK, UNK
     Route: 065
     Dates: start: 2014
  18. ANCEF [Concomitant]
     Active Substance: CEFAZOLIN SODIUM
     Dosage: UNK, UNK
     Route: 065
     Dates: start: 2014
  19. CEFTRIAXONE. [Concomitant]
     Active Substance: CEFTRIAXONE
     Indication: PRODUCT USED FOR UNKNOWN INDICATION
     Dosage: UNK UNK, UNK
     Route: 065
     Dates: start: 2013
  20. CUBICIN [Suspect]
     Active Substance: DAPTOMYCIN
     Dosage: 500 MG, Q24H
     Route: 042
     Dates: start: 20130220, end: 20130222
  21. CUBICIN [Suspect]
     Active Substance: DAPTOMYCIN
     Dosage: 375 MG, Q24H (FREQUENT INTERMITTENT USE)
     Route: 042
     Dates: start: 20130610, end: 20130701
  22. CUBICIN [Suspect]
     Active Substance: DAPTOMYCIN
     Dosage: 390 MG, Q24H
     Route: 042
     Dates: start: 20130713, end: 20130722
  23. CUBICIN [Suspect]
     Active Substance: DAPTOMYCIN
     Dosage: 400 MG, Q24H
     Route: 042
     Dates: start: 20141109, end: 20141115
  24. MEROPENEM. [Concomitant]
     Active Substance: MEROPENEM
     Dosage: UNK UNK, UNK
     Route: 065
     Dates: start: 2013
  25. METRONIDAZOLE. [Concomitant]
     Active Substance: METRONIDAZOLE
     Dosage: UNK UNK, UNK
     Route: 065
     Dates: start: 2013
  26. METRONIDAZOLE. [Concomitant]
     Active Substance: METRONIDAZOLE
     Dosage: UNK UNK, UNK
     Route: 065
     Dates: start: 2014
  27. ANCEF [Concomitant]
     Active Substance: CEFAZOLIN SODIUM
     Indication: PRODUCT USED FOR UNKNOWN INDICATION
     Dosage: UNK UNK, UNK
     Route: 065
     Dates: start: 2012
  28. GANCICLOVIR. [Concomitant]
     Active Substance: GANCICLOVIR
     Indication: PRODUCT USED FOR UNKNOWN INDICATION
     Dosage: UNK UNK, UNK
     Route: 065
     Dates: start: 2012
  29. CUBICIN [Suspect]
     Active Substance: DAPTOMYCIN
     Indication: ENTEROCOCCAL BACTERAEMIA
     Dosage: 430 MG, Q48H
     Route: 042
     Dates: start: 20120823, end: 20120825
  30. CUBICIN [Suspect]
     Active Substance: DAPTOMYCIN
     Dosage: 400 MG, Q24H
     Route: 042
     Dates: start: 20130520, end: 20130521
  31. CUBICIN [Suspect]
     Active Substance: DAPTOMYCIN
     Dosage: 380 MG, Q24H
     Route: 042
     Dates: start: 20130522, end: 20130524
  32. FLUCONAZOLE. [Concomitant]
     Active Substance: FLUCONAZOLE
     Dosage: UNK UNK, UNK
     Route: 065
     Dates: start: 2014
  33. MEROPENEM. [Concomitant]
     Active Substance: MEROPENEM
     Indication: PRODUCT USED FOR UNKNOWN INDICATION
     Dosage: UNK UNK, UNK
     Route: 065
     Dates: start: 2012
  34. BACTRIM [Concomitant]
     Active Substance: SULFAMETHOXAZOLE\TRIMETHOPRIM
     Indication: PRODUCT USED FOR UNKNOWN INDICATION
     Dosage: UNK UNK, UNK
     Route: 065
     Dates: start: 2012
  35. BACTRIM [Concomitant]
     Active Substance: SULFAMETHOXAZOLE\TRIMETHOPRIM
     Dosage: UNK UNK, UNK
     Route: 065
     Dates: start: 2013
  36. VANCOMYCIN [Concomitant]
     Active Substance: VANCOMYCIN
     Dosage: UNK, UNK
     Route: 065
     Dates: start: 2014
  37. ANCEF [Concomitant]
     Active Substance: CEFAZOLIN SODIUM
     Dosage: UNK, UNK
     Route: 065
     Dates: start: 2013
  38. CEFTAZIDIME. [Concomitant]
     Active Substance: CEFTAZIDIME
     Indication: PRODUCT USED FOR UNKNOWN INDICATION
     Dosage: UNK UNK, UNK
     Route: 065
     Dates: start: 2014
  39. CUBICIN [Suspect]
     Active Substance: DAPTOMYCIN
     Dosage: 360 MG, Q24H
     Route: 042
     Dates: start: 20130708, end: 20130712
  40. CUBICIN [Suspect]
     Active Substance: DAPTOMYCIN
     Dosage: 400 MG, Q24H (FIRST DAPTOMYCIN NON SUSCEPTIBLE VRE)
     Route: 042
     Dates: start: 20131001, end: 20131008
  41. CUBICIN [Suspect]
     Active Substance: DAPTOMYCIN
     Dosage: 270 MG, X1
     Route: 042
     Dates: start: 20131021
  42. CUBICIN [Suspect]
     Active Substance: DAPTOMYCIN
     Dosage: 270 MG, X1
     Route: 042
     Dates: start: 20140312
  43. METRONIDAZOLE. [Concomitant]
     Active Substance: METRONIDAZOLE
     Indication: PRODUCT USED FOR UNKNOWN INDICATION
     Dosage: UNK UNK, UNK
     Route: 065
     Dates: start: 2012
  44. ZOSYN [Concomitant]
     Active Substance: PIPERACILLIN SODIUM\TAZOBACTAM SODIUM
     Dosage: UNK UNK, UNK
     Route: 065
     Dates: start: 2014
  45. BACTRIM [Concomitant]
     Active Substance: SULFAMETHOXAZOLE\TRIMETHOPRIM
     Dosage: UNK UNK, UNK
     Route: 065
     Dates: start: 2014
  46. AUGMENTIN [Concomitant]
     Active Substance: AMOXICILLIN\CLAVULANATE POTASSIUM
     Indication: PRODUCT USED FOR UNKNOWN INDICATION
     Dosage: UNK UNK, UNK
     Route: 065
     Dates: start: 2012
  47. ERTAPENEM [Concomitant]
     Active Substance: ERTAPENEM
     Indication: PRODUCT USED FOR UNKNOWN INDICATION
     Dosage: UNK UNK, UNK
     Route: 065
     Dates: start: 2012
  48. DOXYCYCLINE. [Concomitant]
     Active Substance: DOXYCYCLINE
     Indication: PRODUCT USED FOR UNKNOWN INDICATION
     Dosage: UNK UNK, UNK
     Route: 065
     Dates: start: 2013
  49. CUBICIN [Suspect]
     Active Substance: DAPTOMYCIN
     Dosage: 500 MG, Q24H
     Route: 042
     Dates: start: 20130217, end: 20130218
  50. CUBICIN [Suspect]
     Active Substance: DAPTOMYCIN
     Dosage: 500 MG, Q24H
     Route: 042
     Dates: start: 20141124, end: 20141208
  51. MICAFUNGIN [Concomitant]
     Active Substance: MICAFUNGIN
     Indication: PRODUCT USED FOR UNKNOWN INDICATION
     Dosage: UNK UNK, UNK
     Route: 065
     Dates: start: 2012
  52. ZOSYN [Concomitant]
     Active Substance: PIPERACILLIN SODIUM\TAZOBACTAM SODIUM
     Indication: PRODUCT USED FOR UNKNOWN INDICATION
     Dosage: UNK UNK, UNK
     Route: 065
     Dates: start: 2012
  53. ZOSYN [Concomitant]
     Active Substance: PIPERACILLIN SODIUM\TAZOBACTAM SODIUM
     Dosage: UNK UNK, UNK
     Route: 065
     Dates: start: 2013
  54. VANCOMYCIN [Concomitant]
     Active Substance: VANCOMYCIN
     Dosage: UNK, UNK
     Route: 065
     Dates: start: 2013
  55. AUGMENTIN [Concomitant]
     Active Substance: AMOXICILLIN\CLAVULANATE POTASSIUM
     Dosage: UNK, UNK
     Route: 065
     Dates: start: 2013
  56. MOXIFLOXACIN [Concomitant]
     Active Substance: MOXIFLOXACIN
     Dosage: UNK, UNK
     Route: 065
     Dates: start: 2013
  57. ACYCLOVIR                          /00587301/ [Concomitant]
     Active Substance: ACYCLOVIR
     Dosage: UNK UNK, UNK
     Route: 065
     Dates: start: 2014
  58. CUBICIN [Suspect]
     Active Substance: DAPTOMYCIN
     Indication: ANTIBIOTIC PROPHYLAXIS
     Dosage: 460 MG, Q48H
     Route: 042
     Dates: start: 20120703, end: 20120817
  59. CUBICIN [Suspect]
     Active Substance: DAPTOMYCIN
     Indication: PREOPERATIVE CARE
     Dosage: 530 MG, Q48H
     Route: 042
     Dates: start: 20120820, end: 20120823
  60. CUBICIN [Suspect]
     Active Substance: DAPTOMYCIN
     Dosage: 500 MG, Q48H
     Route: 042
     Dates: start: 20130219, end: 20130220
  61. CUBICIN [Suspect]
     Active Substance: DAPTOMYCIN
     Dosage: 400 MG, Q24H
     Route: 042
     Dates: start: 20130409, end: 20130412
  62. LINEZOLID. [Concomitant]
     Active Substance: LINEZOLID
     Dosage: UNK UNK, UNK
     Route: 065
     Dates: start: 2013
  63. FLUCONAZOLE. [Concomitant]
     Active Substance: FLUCONAZOLE
     Dosage: UNK UNK, UNK
     Route: 065
     Dates: start: 2013
  64. AUGMENTIN [Concomitant]
     Active Substance: AMOXICILLIN\CLAVULANATE POTASSIUM
     Route: 065
     Dates: start: 2014
  65. GANCICLOVIR. [Concomitant]
     Active Substance: GANCICLOVIR
     Dosage: UNK UNK, UNK
     Route: 065
     Dates: start: 2014
  66. MOXIFLOXACIN [Concomitant]
     Active Substance: MOXIFLOXACIN
     Indication: PRODUCT USED FOR UNKNOWN INDICATION
     Dosage: UNK UNK, UNK
     Route: 065
     Dates: start: 2012
  67. VALACYCLOVIR [Concomitant]
     Active Substance: VALACYCLOVIR HYDROCHLORIDE
     Dosage: UNK, UNK
     Route: 065
     Dates: start: 2013
  68. CUBICIN [Suspect]
     Active Substance: DAPTOMYCIN
     Indication: OFF LABEL USE
     Dosage: 400 MG, Q24H
     Route: 042
     Dates: start: 20121020, end: 20121030
  69. CUBICIN [Suspect]
     Active Substance: DAPTOMYCIN
     Dosage: 375 MG, Q24H
     Route: 042
     Dates: start: 20130323, end: 20130407
  70. CUBICIN [Suspect]
     Active Substance: DAPTOMYCIN
     Dosage: 500 MG, Q24H
     Route: 042
     Dates: start: 20130430, end: 20130501
  71. CUBICIN [Suspect]
     Active Substance: DAPTOMYCIN
     Dosage: 500 MG, Q24H
     Route: 042
     Dates: start: 20140219, end: 20140224
  72. CUBICIN [Suspect]
     Active Substance: DAPTOMYCIN
     Dosage: 380 MG, X1
     Route: 042
     Dates: start: 20141108
  73. MICAFUNGIN [Concomitant]
     Active Substance: MICAFUNGIN
     Dosage: UNK UNK, UNK
     Route: 065
     Dates: start: 2014
  74. VANCOMYCIN [Concomitant]
     Active Substance: VANCOMYCIN
     Indication: PRODUCT USED FOR UNKNOWN INDICATION
     Dosage: UNK UNK, UNK
     Route: 065
     Dates: start: 2012
  75. ERYTHROMYCIN. [Concomitant]
     Active Substance: ERYTHROMYCIN
     Indication: PRODUCT USED FOR UNKNOWN INDICATION
     Dosage: UNK UNK, UNK
     Route: 065
     Dates: start: 2012
  76. TIGECYCLINE [Concomitant]
     Active Substance: TIGECYCLINE
     Indication: PRODUCT USED FOR UNKNOWN INDICATION
     Dosage: UNK UNK, UNK
     Route: 065
     Dates: start: 2012
  77. VALACYCLOVIR [Concomitant]
     Active Substance: VALACYCLOVIR HYDROCHLORIDE
     Indication: PRODUCT USED FOR UNKNOWN INDICATION
     Dosage: UNK UNK, UNK
     Route: 065
     Dates: start: 2012

REACTIONS (3)
  - Enterococcal bacteraemia [Not Recovered/Not Resolved]
  - Antimicrobial susceptibility test resistant [Not Recovered/Not Resolved]
  - Off label use [Unknown]
